FAERS Safety Report 6162203-8 (Version None)
Quarter: 2009Q2

REPORT INFORMATION
  Report Type: 
  Country: None (occurrence: None)
  Receive Date: 20090417
  Receipt Date: 20090417
  Transmission Date: 20091009
  Serious: Yes (Hospitalization, Other)
  Sender: FDA-Public Use
  Company Number: None

PATIENT
  Age: 68 Year
  Sex: Female
  Weight: 72.5755 kg

DRUGS (1)
  1. ACTONEL [Suspect]
     Indication: BONE DENSITOMETRY
     Dosage: ONCE EVERY MONTH PO
     Route: 048
     Dates: start: 20090328

REACTIONS (9)
  - ABASIA [None]
  - ARTHRALGIA [None]
  - CHEST DISCOMFORT [None]
  - CHEST PAIN [None]
  - DIARRHOEA [None]
  - HEADACHE [None]
  - MYALGIA [None]
  - NAUSEA [None]
  - VOMITING [None]
